FAERS Safety Report 7044886-3 (Version None)
Quarter: 2010Q4

REPORT INFORMATION
  Report Type: 
  Country: None (occurrence: None)
  Receive Date: 20101014
  Receipt Date: 20101011
  Transmission Date: 20110411
  Serious: Yes (Death, Hospitalization)
  Sender: FDA-Public Use
  Company Number: PHFR2010IE01552

PATIENT
  Sex: Female

DRUGS (6)
  1. CLOZARIL [Suspect]
     Indication: SCHIZOPHRENIA
     Dosage: 600MG DAILY
     Route: 048
     Dates: start: 20001213
  2. MIRTAZAPINE [Concomitant]
     Indication: SCHIZOPHRENIA
     Dosage: 30MG/DAY
     Route: 048
  3. VENLAFAXINE HCL [Concomitant]
     Indication: DEPRESSION
     Route: 048
  4. CLONAZEPAM [Concomitant]
     Dosage: UNK
     Route: 048
  5. GAVISCON                                /GFR/ [Concomitant]
     Indication: GASTROOESOPHAGEAL REFLUX DISEASE
     Dosage: 10 ML, BID
     Route: 048
  6. EPILIM CHRONO [Concomitant]
     Indication: DEPRESSION
     Dosage: 1000MG/DAY
     Route: 048

REACTIONS (10)
  - ANAEMIA [None]
  - FATIGUE [None]
  - HYPERHIDROSIS [None]
  - LETHARGY [None]
  - MALAISE [None]
  - NEOPLASM MALIGNANT [None]
  - OESOPHAGEAL MASS [None]
  - OESOPHAGEAL SQUAMOUS CELL CARCINOMA [None]
  - RESTLESSNESS [None]
  - WEIGHT DECREASED [None]
